FAERS Safety Report 10196433 (Version 2)
Quarter: 2014Q2

REPORT INFORMATION
  Report Type: Spontaneous
  Country: SA (occurrence: SA)
  Receive Date: 20140527
  Receipt Date: 20140620
  Transmission Date: 20141212
  Serious: Yes (Other)
  Sender: FDA-Public Use
  Company Number: SA-JNJFOC-20140511779

PATIENT
  Age: 22 Year
  Sex: Female

DRUGS (3)
  1. INVEGA [Suspect]
     Indication: SCHIZOPHRENIA
     Route: 048
     Dates: start: 201205
  2. INVEGA [Suspect]
     Indication: SCHIZOPHRENIA
     Dosage: PATIENT WAS TREATED WITH OROS PALIPERIDONE 3-9 MG  ONCE A DAY FOR 2 YEARS.
     Route: 048
     Dates: start: 201205
  3. COGENTIN [Suspect]
     Indication: PRODUCT USED FOR UNKNOWN INDICATION
     Route: 065
     Dates: start: 201205, end: 2014

REACTIONS (1)
  - Diabetes mellitus [Not Recovered/Not Resolved]
